FAERS Safety Report 6556621-3 (Version None)
Quarter: 2010Q1

REPORT INFORMATION
  Report Type: 
  Country: None (occurrence: None)
  Receive Date: 20100128
  Receipt Date: 20100122
  Transmission Date: 20100710
  Serious: Yes (Death)
  Sender: FDA-Public Use
  Company Number: US-GILEAD-2010-0026625

PATIENT
  Sex: Male
  Weight: 79.45 kg

DRUGS (10)
  1. LETAIRIS [Suspect]
     Indication: PULMONARY ARTERIAL HYPERTENSION
     Route: 048
     Dates: start: 20091107, end: 20100108
  2. PLAVIX [Concomitant]
  3. SIMVASTATIN [Concomitant]
  4. LIPITOR [Concomitant]
  5. EASA [Concomitant]
  6. ALBUTEROL [Concomitant]
  7. PREDNISONE [Concomitant]
  8. FORADIL [Concomitant]
  9. MUCOMYST [Concomitant]
  10. LORAZEPAM [Concomitant]

REACTIONS (1)
  - PULMONARY FIBROSIS [None]
